FAERS Safety Report 10351160 (Version 4)
Quarter: 2014Q3

REPORT INFORMATION
  Report Type: Spontaneous
  Country: GB (occurrence: GB)
  Receive Date: 20140730
  Receipt Date: 20140819
  Transmission Date: 20150326
  Serious: Yes (Death, Hospitalization, Other)
  Sender: FDA-Public Use
  Company Number: PHFR2014GB004969

PATIENT
  Age: 65 Year
  Sex: Male

DRUGS (1)
  1. CLOZARIL [Suspect]
     Active Substance: CLOZAPINE
     Indication: SCHIZOPHRENIA
     Dosage: UKN
     Route: 048
     Dates: start: 20071217, end: 20140715

REACTIONS (13)
  - Cardiac arrest [Unknown]
  - Constipation [Recovered/Resolved]
  - Platelet count increased [Unknown]
  - Differential white blood cell count abnormal [Unknown]
  - Cardiac failure [Fatal]
  - Confusional state [Recovered/Resolved]
  - Dyspnoea [Unknown]
  - Malaise [Unknown]
  - Brain injury [Unknown]
  - Sputum discoloured [Recovered/Resolved]
  - White blood cell count increased [Unknown]
  - Neutrophil count increased [Unknown]
  - Pneumonia [Unknown]

NARRATIVE: CASE EVENT DATE: 20140430
